FAERS Safety Report 22393740 (Version 1)
Quarter: 2023Q2

REPORT INFORMATION
  Report Type: Spontaneous
  Country: EG (occurrence: EG)
  Receive Date: 20230601
  Receipt Date: 20230601
  Transmission Date: 20230721
  Serious: Yes (Death)
  Sender: FDA-Public Use
  Company Number: EG-PFIZER INC-PV202300096107

PATIENT
  Age: 66 Year
  Sex: Male

DRUGS (4)
  1. SUTENT [Suspect]
     Active Substance: SUNITINIB MALATE
     Indication: Gastrointestinal stromal tumour
     Dosage: 4 TABS DAILY FOR 2 WEEKS ON AND ONE WEEK OFF
     Route: 048
  2. CALCIUM D3 F [Concomitant]
     Dosage: ONE TAB WITH BREAKFAST
  3. XGEVA [Concomitant]
     Active Substance: DENOSUMAB
     Dosage: SC AMP EVERY 28 DAYS
     Route: 058
  4. DEVAROL S [Concomitant]
     Dosage: DISCHARGE IN JUICE

REACTIONS (1)
  - Death [Fatal]
